FAERS Safety Report 21682538 (Version 2)
Quarter: 2023Q1

REPORT INFORMATION
  Report Type: Spontaneous
  Country: IN (occurrence: IN)
  Receive Date: 20221205
  Receipt Date: 20230103
  Transmission Date: 20230418
  Serious: Yes (Hospitalization, Other)
  Sender: FDA-Public Use
  Company Number: IN-PFIZER INC-PV202200115402

PATIENT
  Age: 34 Year
  Sex: Female

DRUGS (2)
  1. PALBOCICLIB [Suspect]
     Active Substance: PALBOCICLIB
     Dosage: 125 MG, OD
     Route: 048
  2. PALBOCICLIB [Suspect]
     Active Substance: PALBOCICLIB
     Dosage: UNK
     Dates: end: 202211

REACTIONS (9)
  - Pneumonia [Unknown]
  - Pulmonary oedema [Unknown]
  - Tuberculosis [Unknown]
  - Pulmonary tuberculosis [Recovering/Resolving]
  - Tuberculous pleurisy [Recovering/Resolving]
  - Respiratory distress [Recovering/Resolving]
  - Pyrexia [Recovering/Resolving]
  - Cough [Recovering/Resolving]
  - Neoplasm progression [Unknown]
